FAERS Safety Report 11797396 (Version 3)
Quarter: 2016Q1

REPORT INFORMATION
  Report Type: Spontaneous
  Country: US (occurrence: US)
  Receive Date: 20151203
  Receipt Date: 20160201
  Transmission Date: 20160525
  Serious: Yes (Hospitalization)
  Sender: FDA-Public Use
  Company Number: US-BAXTER-2015BAX064687

PATIENT
  Age: 91 Year
  Sex: Female

DRUGS (1)
  1. DIANEAL LOW CALCIUM PERITONEAL DIALYSIS SOLUTION WITH DEXTROSE [Suspect]
     Active Substance: CALCIUM CHLORIDE\DEXTROSE\MAGNESIUM CHLORIDE\SODIUM CHLORIDE\SODIUM LACTATE
     Indication: PERITONEAL DIALYSIS
     Route: 033

REACTIONS (5)
  - Pain in extremity [Unknown]
  - Thrombosis [Not Recovered/Not Resolved]
  - Poor peripheral circulation [Recovering/Resolving]
  - Skin discolouration [Recovering/Resolving]
  - Peripheral artery occlusion [Unknown]

NARRATIVE: CASE EVENT DATE: 20151217
